FAERS Safety Report 7718006-3 (Version None)
Quarter: 2011Q3

REPORT INFORMATION
  Report Type: 
  Country: None (occurrence: None)
  Receive Date: 20110830
  Receipt Date: 20110823
  Transmission Date: 20111222
  Serious: Yes (Other)
  Sender: FDA-Public Use
  Company Number: US-AMGEN-USASP2011043137

PATIENT
  Sex: Female

DRUGS (3)
  1. CYTOXAN [Concomitant]
  2. TAXOTERE [Concomitant]
  3. NEULASTA [Suspect]
     Indication: CHEMOTHERAPY

REACTIONS (2)
  - GLOMERULONEPHRITIS MEMBRANOPROLIFERATIVE [None]
  - TYPE III IMMUNE COMPLEX MEDIATED REACTION [None]
